FAERS Safety Report 13362883 (Version 1)
Quarter: 2017Q1

REPORT INFORMATION
  Report Type: Spontaneous
  Country: US (occurrence: US)
  Receive Date: 20170322
  Receipt Date: 20170322
  Transmission Date: 20170429
  Serious: Yes (Other)
  Sender: FDA-Public Use
  Company Number: None

PATIENT
  Age: 37 Year
  Sex: Male
  Weight: 94.5 kg

DRUGS (2)
  1. NIGHTTIME COLD AND FLU RELIEF [Suspect]
     Active Substance: ACETAMINOPHEN\DEXTROMETHORPHAN HYDROBROMIDE\DOXYLAMINE SUCCINATE
     Indication: RESPIRATORY SYMPTOM
     Dosage: ?          OTHER FREQUENCY:QD;?
     Route: 048
     Dates: start: 20170317
  2. ELDERBERRY SYRUP - BRAND: HONEY GARDENS [Concomitant]

REACTIONS (4)
  - Miosis [None]
  - Nausea [None]
  - Hyperhidrosis [None]
  - Balance disorder [None]

NARRATIVE: CASE EVENT DATE: 20170318
